FAERS Safety Report 10209799 (Version 1)
Quarter: 2014Q2

REPORT INFORMATION
  Report Type: Report from Study
  Country: MX (occurrence: MX)
  Receive Date: 20140602
  Receipt Date: 20140602
  Transmission Date: 20141212
  Serious: Yes (Other)
  Sender: FDA-Public Use
  Company Number: PHHY2014MX063987

PATIENT
  Age: 66 Year
  Sex: Male

DRUGS (2)
  1. EXJADE [Suspect]
     Indication: MYELODYSPLASTIC SYNDROME
     Dosage: 1 DF, DAILY
     Route: 048
     Dates: start: 2012
  2. EXJADE [Suspect]
     Dosage: 1 DF, DAILY
     Route: 048

REACTIONS (7)
  - Metastases to bone marrow [Not Recovered/Not Resolved]
  - Bone marrow tumour cell infiltration [Not Recovered/Not Resolved]
  - Metastases to skin [Not Recovered/Not Resolved]
  - Metastases to bone [Not Recovered/Not Resolved]
  - Neuropathy peripheral [Not Recovered/Not Resolved]
  - Renal failure chronic [Not Recovered/Not Resolved]
  - Malaise [Not Recovered/Not Resolved]
